FAERS Safety Report 20935525 (Version 1)
Quarter: 2022Q2

REPORT INFORMATION
  Report Type: Spontaneous
  Country: PL (occurrence: PL)
  Receive Date: 20220609
  Receipt Date: 20220609
  Transmission Date: 20220721
  Serious: Yes (Death)
  Sender: FDA-Public Use
  Company Number: None

PATIENT
  Age: 74 Year
  Sex: Male
  Weight: 60 kg

DRUGS (4)
  1. ETOPOSIDE [Suspect]
     Active Substance: ETOPOSIDE
     Indication: Lung neoplasm malignant
     Route: 042
     Dates: start: 20220428, end: 20220430
  2. CISPLATIN [Suspect]
     Active Substance: CISPLATIN
     Indication: Lung neoplasm malignant
     Route: 042
     Dates: start: 20220428, end: 20220430
  3. OXYCODONE [Concomitant]
     Active Substance: OXYCODONE
     Dosage: OKSYKODON
  4. BUPRENORPHINE [Concomitant]
     Active Substance: BUPRENORPHINE

REACTIONS (3)
  - Sepsis [Fatal]
  - Agranulocytosis [Fatal]
  - Pneumonia bacterial [Fatal]

NARRATIVE: CASE EVENT DATE: 20220511
